FAERS Safety Report 5472988-1 (Version None)
Quarter: 2007Q3

REPORT INFORMATION
  Report Type: 
  Country: None (occurrence: None)
  Receive Date: 20070927
  Receipt Date: 20070912
  Transmission Date: 20080115
  Serious: Yes (Hospitalization)
  Sender: FDA-Public Use
  Company Number: 2007JP004102

PATIENT
  Age: 28 Year
  Sex: Female

DRUGS (7)
  1. PROGRAF [Suspect]
     Indication: DERMATITIS ATOPIC
     Dosage: 0.03%, TOPICAL
     Route: 061
     Dates: start: 20011210, end: 20070418
  2. ALLEGRA (FEXOFENADINE HYDROCHLORIDE) [Concomitant]
  3. METHADERM (DEXAMETHASONE DIPROPIONATE) [Concomitant]
  4. TOPSYM (FLUOCINONIDE) [Concomitant]
  5. ACUATIM (NADIFLOXACIN) [Concomitant]
  6. PETROLATUM (PETROLATUM) [Concomitant]
  7. STEROID EXTERNAL [Concomitant]

REACTIONS (1)
  - LYMPHADENOPATHY [None]
